FAERS Safety Report 6790845-5 (Version None)
Quarter: 2010Q2

REPORT INFORMATION
  Report Type: 
  Country: None (occurrence: None)
  Receive Date: 20100624
  Receipt Date: 20100615
  Transmission Date: 20101027
  Serious: Yes (Hospitalization)
  Sender: FDA-Public Use
  Company Number: A0865292A

PATIENT
  Age: 59 Year
  Sex: Female

DRUGS (8)
  1. LAMICTAL [Suspect]
     Indication: PARTIAL SEIZURES
     Dosage: 200MG TWICE PER DAY
     Route: 048
  2. SYNTHROID [Concomitant]
  3. DIAZEPAM [Concomitant]
  4. FLEXERIL [Concomitant]
  5. LORA TAB [Concomitant]
  6. GABAPENTIN [Concomitant]
  7. DIOVAN [Concomitant]
  8. PRISTIQ [Concomitant]

REACTIONS (3)
  - CONVULSION [None]
  - DRUG INEFFECTIVE [None]
  - PETIT MAL EPILEPSY [None]
